FAERS Safety Report 5905060-4 (Version None)
Quarter: 2008Q4

REPORT INFORMATION
  Report Type: 
  Country: None (occurrence: None)
  Receive Date: 20081001
  Receipt Date: 20080925
  Transmission Date: 20090506
  Serious: Yes (Other)
  Sender: FDA-Public Use
  Company Number: CH-WYE-G02050408

PATIENT
  Sex: Female

DRUGS (5)
  1. TEMESTA [Suspect]
     Dates: start: 20080101, end: 20080101
  2. SOLIAN [Suspect]
     Dosage: 50 MG, FREQUENCY UNKNOWN
  3. SALICYLIC ACID [Suspect]
     Dosage: 100 MG, FREQUENCY UNKNOWN
  4. EFFEXOR [Suspect]
     Dosage: 150 MG, FREQUENCY UNKNOWN
     Dates: end: 20080101
  5. EFFEXOR [Suspect]
     Dosage: 37.5 MG, FREQUENCY UNKNOWN
     Dates: start: 20080101

REACTIONS (3)
  - PARESIS [None]
  - SPEECH DISORDER [None]
  - TONGUE DISORDER [None]
